FAERS Safety Report 5032571-9 (Version None)
Quarter: 2006Q2

REPORT INFORMATION
  Report Type: 
  Country: None (occurrence: None)
  Receive Date: 20060620
  Receipt Date: 20060605
  Transmission Date: 20061013
  Serious: Yes (Hospitalization)
  Sender: FDA-Public Use
  Company Number: 2006-143584-NL

PATIENT
  Age: 24 Year
  Sex: Female
  Weight: 81.6 kg

DRUGS (1)
  1. NUVARING [Suspect]
     Indication: POLYCYSTIC OVARIES
     Dosage: NI VAGINAL
     Route: 067
     Dates: start: 20050101

REACTIONS (7)
  - DRUG INTOLERANCE [None]
  - HEADACHE [None]
  - IRRITABLE BOWEL SYNDROME [None]
  - NAUSEA [None]
  - OVARIAN CYST RUPTURED [None]
  - SWELLING [None]
  - WEIGHT INCREASED [None]
